FAERS Safety Report 19496795 (Version 1)
Quarter: 2021Q3

REPORT INFORMATION
  Report Type: Spontaneous
  Country: US (occurrence: US)
  Receive Date: 20210701
  Receipt Date: 20210701
  Transmission Date: 20211014
  Serious: Yes (Other)
  Sender: FDA-Public Use
  Company Number: None

PATIENT
  Age: 57 Year
  Sex: Female

DRUGS (11)
  1. ATORVASTATIN [Concomitant]
     Active Substance: ATORVASTATIN
  2. PREDNISONE. [Concomitant]
     Active Substance: PREDNISONE
  3. TRAMADOL. [Concomitant]
     Active Substance: TRAMADOL
  4. ALBUTEROL. [Concomitant]
     Active Substance: ALBUTEROL
  5. ALENDRONATE [Concomitant]
     Active Substance: ALENDRONATE SODIUM
  6. ALPRAZOLAM. [Concomitant]
     Active Substance: ALPRAZOLAM
  7. FAMOTIDINE. [Concomitant]
     Active Substance: FAMOTIDINE
  8. ACTEMRA [Suspect]
     Active Substance: TOCILIZUMAB
     Indication: ATRIAL FIBRILLATION
     Dosage: ?          OTHER FREQUENCY:EVERY7DAYS ;?
     Route: 058
     Dates: start: 20201104
  9. PANTOPRAZOLE [Concomitant]
     Active Substance: PANTOPRAZOLE
  10. ELIQUIS [Concomitant]
     Active Substance: APIXABAN
  11. ESCITALOPRAM [Concomitant]
     Active Substance: ESCITALOPRAM OXALATE

REACTIONS (2)
  - Cardiac ablation [None]
  - Nasopharyngitis [None]
